FAERS Safety Report 4436376-9 (Version None)
Quarter: 2004Q3

REPORT INFORMATION
  Report Type: 
  Country: None (occurrence: None)
  Receive Date: 20040830
  Receipt Date: 20040216
  Transmission Date: 20050211
  Serious: Yes (Other)
  Sender: FDA-Public Use
  Company Number: US-BRISTOL-MYERS SQUIBB COMPANY-12510095

PATIENT
  Age: 11 Year
  Sex: Female
  Weight: 36 kg

DRUGS (7)
  1. ABILIFY [Suspect]
     Indication: MAJOR DEPRESSION
     Dosage: INCREASED TO 10 MG/DAY. DRUG HELD ON 06-FEB-04; RESTARTED THE SAME DAY.
     Route: 048
     Dates: start: 20040204, end: 20040210
  2. ABILIFY [Suspect]
     Indication: ATTENTION DEFICIT/HYPERACTIVITY DISORDER
     Dosage: INCREASED TO 10 MG/DAY. DRUG HELD ON 06-FEB-04; RESTARTED THE SAME DAY.
     Route: 048
     Dates: start: 20040204, end: 20040210
  3. ABILIFY [Suspect]
     Indication: BIPOLAR DISORDER
     Dosage: INCREASED TO 10 MG/DAY. DRUG HELD ON 06-FEB-04; RESTARTED THE SAME DAY.
     Route: 048
     Dates: start: 20040204, end: 20040210
  4. PROZAC [Concomitant]
  5. RISPERIDONE [Concomitant]
     Dates: end: 20040206
  6. BENADRYL [Concomitant]
  7. STRATTERA [Concomitant]

REACTIONS (3)
  - DYSTONIA [None]
  - NEUROLEPTIC MALIGNANT SYNDROME [None]
  - TREMOR [None]
